FAERS Safety Report 9398602 (Version 1)
Quarter: 2013Q3

REPORT INFORMATION
  Report Type: Spontaneous
  Country: FR (occurrence: FR)
  Receive Date: 20130712
  Receipt Date: 20130712
  Transmission Date: 20140515
  Serious: Yes (Hospitalization)
  Sender: FDA-Public Use
  Company Number: FR-VERTEX PHARMACEUTICALS INC-2013-007924

PATIENT
  Age: 58 Year
  Sex: Male

DRUGS (5)
  1. INCIVO [Suspect]
     Indication: HEPATITIS CHRONIC ACTIVE
     Dosage: 750 MG, TID
     Route: 048
     Dates: start: 20130318, end: 20130610
  2. COPEGUS [Suspect]
     Indication: HEPATITIS CHRONIC ACTIVE
     Dosage: IN THE MORNING
     Route: 048
     Dates: start: 20130318, end: 20130610
  3. COPEGUS [Suspect]
     Dosage: IN THE EVENING
     Route: 048
     Dates: start: 20130318, end: 20130610
  4. PEGASYS [Suspect]
     Indication: HEPATITIS CHRONIC ACTIVE
     Dosage: DOSAGE FORM: INJECTION
     Route: 058
     Dates: start: 20130323, end: 20130608
  5. ARANESP [Suspect]
     Indication: ANAEMIA
     Route: 058
     Dates: start: 20130423, end: 20130610

REACTIONS (1)
  - Drug reaction with eosinophilia and systemic symptoms [Not Recovered/Not Resolved]
